FAERS Safety Report 8262202-6 (Version None)
Quarter: 2012Q2

REPORT INFORMATION
  Report Type: 
  Country: None (occurrence: None)
  Receive Date: 20120405
  Receipt Date: 20120322
  Transmission Date: 20120825
  Serious: Yes (Death)
  Sender: FDA-Public Use
  Company Number: PL-CELGENEUS-129-20785-12032693

PATIENT
  Age: 45 Year
  Sex: Male

DRUGS (10)
  1. MELPHALAN HYDROCHLORIDE [Concomitant]
     Route: 065
     Dates: start: 20100101
  2. CYCLOPHOSPHAMIDE [Concomitant]
     Route: 065
     Dates: start: 20100101
  3. METHOTREXATE [Concomitant]
     Route: 065
     Dates: start: 20100101
  4. DEPOCYT [Concomitant]
     Route: 065
     Dates: start: 20100101
  5. DEXAMETHASONE [Concomitant]
     Route: 065
     Dates: start: 20100101
  6. THALIDOMIDE [Suspect]
     Indication: MULTIPLE MYELOMA
     Route: 048
  7. CYTOSAR-U [Concomitant]
     Route: 065
     Dates: start: 20100101
  8. VINCRISTINE [Concomitant]
     Route: 065
     Dates: start: 20100101
  9. CARMUSTINE [Concomitant]
     Route: 065
     Dates: start: 20100101
  10. PREDNISONE TAB [Concomitant]
     Route: 065
     Dates: start: 20100101

REACTIONS (1)
  - PLASMABLASTIC LYMPHOMA [None]
